FAERS Safety Report 21425661 (Version 3)
Quarter: 2022Q4

REPORT INFORMATION
  Report Type: Report from Study
  Country: US (occurrence: US)
  Receive Date: 20221008
  Receipt Date: 20221024
  Transmission Date: 20230113
  Serious: No
  Sender: FDA-Public Use
  Company Number: US-ABBVIE-4143864

PATIENT
  Age: 73 Year
  Sex: Male

DRUGS (2)
  1. SKYRIZI [Suspect]
     Active Substance: RISANKIZUMAB-RZAA
     Indication: Psoriatic arthropathy
     Dosage: FORM STRENGTH 150 MG
     Route: 058
     Dates: start: 20220708
  2. SKYRIZI [Suspect]
     Active Substance: RISANKIZUMAB-RZAA
     Indication: Psoriasis

REACTIONS (6)
  - Pruritus [Recovering/Resolving]
  - Erythema [Unknown]
  - Rash pruritic [Recovering/Resolving]
  - Rash papular [Recovering/Resolving]
  - Skin exfoliation [Unknown]
  - Urticaria [Unknown]

NARRATIVE: CASE EVENT DATE: 20220813
